FAERS Safety Report 6394204-9 (Version None)
Quarter: 2009Q4

REPORT INFORMATION
  Report Type: 
  Country: None (occurrence: None)
  Receive Date: 20091008
  Receipt Date: 20091001
  Transmission Date: 20100525
  Serious: Yes (Hospitalization)
  Sender: FDA-Public Use
  Company Number: US-GILEAD-2009-0023565

PATIENT
  Sex: Male
  Weight: 104.42 kg

DRUGS (9)
  1. LETAIRIS [Suspect]
     Indication: PULMONARY ARTERIAL HYPERTENSION
     Route: 048
     Dates: start: 20080624, end: 20090811
  2. REMODULIN [Concomitant]
  3. VENTAVIS [Concomitant]
  4. REVATIO [Concomitant]
  5. TORSEMIDE [Concomitant]
  6. DIGOXIN [Concomitant]
  7. SPIRONOLACTONE [Concomitant]
  8. NEXIUM [Concomitant]
  9. FERGON [Concomitant]

REACTIONS (8)
  - ABDOMINAL PAIN UPPER [None]
  - ANAEMIA [None]
  - ARRHYTHMIA [None]
  - CONVULSION [None]
  - DEVICE RELATED INFECTION [None]
  - ELECTROLYTE IMBALANCE [None]
  - HYPOVOLAEMIA [None]
  - SYNCOPE [None]
